FAERS Safety Report 19270458 (Version 1)
Quarter: 2021Q2

REPORT INFORMATION
  Report Type: Report from Study
  Country: CA (occurrence: CA)
  Receive Date: 20210518
  Receipt Date: 20210518
  Transmission Date: 20210717
  Serious: Yes (Other)
  Sender: FDA-Public Use
  Company Number: CA-GLAXOSMITHKLINE-CA2021AMR104505

PATIENT
  Sex: Male

DRUGS (6)
  1. PREDNISONE. [Suspect]
     Active Substance: PREDNISONE
     Indication: ASTHMA
     Dosage: UNK
  2. SYMBICORT [Suspect]
     Active Substance: BUDESONIDE\FORMOTEROL FUMARATE DIHYDRATE
     Indication: PRODUCT USED FOR UNKNOWN INDICATION
     Dosage: 2 PUFF(S), QD STARTED 8 YEARS AGO
  3. MEPOLIZUMAB [Suspect]
     Active Substance: MEPOLIZUMAB
     Indication: ASTHMA
     Dosage: 100 MG,EVERY 4 WEEKS
     Route: 058
     Dates: start: 20170512
  4. ATROVENT [Suspect]
     Active Substance: IPRATROPIUM BROMIDE
     Indication: PRODUCT USED FOR UNKNOWN INDICATION
     Dosage: 2 PUFFS UP TO QID STARTED 6 YEARS AGO
  5. XOLAIR [Suspect]
     Active Substance: OMALIZUMAB
     Indication: PRODUCT USED FOR UNKNOWN INDICATION
     Dosage: Q2WEEKS SC INJECTION STARTED 4 YEARS AGO
     Route: 058
     Dates: end: 201701
  6. VENTOLIN [Suspect]
     Active Substance: ALBUTEROL SULFATE
     Indication: PRODUCT USED FOR UNKNOWN INDICATION
     Dosage: 2?4 PUFFS DAILY AS NEEDED STARTED 10 YEARS AGO

REACTIONS (19)
  - Impaired gastric emptying [Unknown]
  - Tachycardia [Unknown]
  - Sleep disorder [Unknown]
  - Fall [Unknown]
  - Arrhythmia [Unknown]
  - Asthma [Unknown]
  - Rib fracture [Unknown]
  - Muscular weakness [Unknown]
  - Abdominal distension [Unknown]
  - Productive cough [Unknown]
  - Anxiety [Unknown]
  - Chronic obstructive pulmonary disease [Unknown]
  - Erythema [Unknown]
  - Gravitational oedema [Unknown]
  - Nephrolithiasis [Unknown]
  - Dyspnoea [Unknown]
  - Flatulence [Unknown]
  - Neck pain [Unknown]
  - Dry skin [Not Recovered/Not Resolved]
